FAERS Safety Report 8227883-1 (Version None)
Quarter: 2012Q1

REPORT INFORMATION
  Report Type: 
  Country: None (occurrence: None)
  Receive Date: 20120322
  Receipt Date: 20120316
  Transmission Date: 20120608
  Serious: Yes (Other)
  Sender: FDA-Public Use
  Company Number: US-PFIZER INC-2012062357

PATIENT
  Sex: Female
  Weight: 68.027 kg

DRUGS (6)
  1. TOPAMAX [Concomitant]
     Indication: NERVOUS SYSTEM DISORDER
     Dosage: 50 MG, 3X/DAY
     Dates: start: 20070301
  2. PREMARIN [Suspect]
     Indication: HORMONE REPLACEMENT THERAPY
     Dosage: 0.365 MG, DAILY
  3. LYRICA [Concomitant]
     Indication: NERVOUS SYSTEM DISORDER
     Dosage: 100 MG, 4X/DAY
     Dates: start: 20070301
  4. TOPAMAX [Concomitant]
     Indication: HEADACHE
  5. PROMETHAZINE HCL [Suspect]
     Indication: NAUSEA
     Dosage: 25 MG, UNK
  6. PROMETHAZINE HCL [Suspect]
     Indication: ABDOMINAL DISCOMFORT

REACTIONS (6)
  - NAUSEA [None]
  - BRAIN MALFORMATION [None]
  - INCORRECT DOSE ADMINISTERED [None]
  - FATIGUE [None]
  - HEADACHE [None]
  - ABDOMINAL DISCOMFORT [None]
